FAERS Safety Report 23132801 (Version 1)
Quarter: 2023Q4

REPORT INFORMATION
  Report Type: Spontaneous
  Country: DE (occurrence: DE)
  Receive Date: 20231101
  Receipt Date: 20231101
  Transmission Date: 20240110
  Serious: Yes (Other)
  Sender: FDA-Public Use
  Company Number: DE-ALKEM LABORATORIES LIMITED-DE-ALKEM-2023-12853

PATIENT
  Age: 29 Year

DRUGS (4)
  1. LACOSAMIDE [Suspect]
     Active Substance: LACOSAMIDE
     Indication: Partial seizures
     Dosage: UNK
     Route: 065
  2. LACOSAMIDE [Suspect]
     Active Substance: LACOSAMIDE
     Dosage: UNK (RESTARTED DOSE)
     Route: 065
  3. LEVETIRACETAM [Suspect]
     Active Substance: LEVETIRACETAM
     Indication: Partial seizures
     Dosage: UNK
     Route: 065
  4. LEVETIRACETAM [Suspect]
     Active Substance: LEVETIRACETAM
     Dosage: UNK (RESTARTED DOSE)
     Route: 065

REACTIONS (6)
  - Amaurosis [Unknown]
  - Hemiparesis [Unknown]
  - Pain in extremity [Not Recovered/Not Resolved]
  - Monoparesis [Not Recovered/Not Resolved]
  - Keratopathy [Unknown]
  - Drug ineffective [Unknown]
